FAERS Safety Report 8461512-7 (Version None)
Quarter: 2012Q2

REPORT INFORMATION
  Report Type: 
  Country: None (occurrence: None)
  Receive Date: 20120625
  Receipt Date: 20120614
  Transmission Date: 20120825
  Serious: Yes (Death)
  Sender: FDA-Public Use
  Company Number: CO-MPIJNJ-2012-03928

PATIENT

DRUGS (3)
  1. CYCLOPHOSPHAMIDE [Concomitant]
  2. VELCADE [Suspect]
     Indication: MULTIPLE MYELOMA
     Dosage: UNK
     Route: 042
     Dates: start: 20111125
  3. DEXAMETHASONE [Concomitant]

REACTIONS (3)
  - URINARY TRACT INFECTION [None]
  - INFLUENZA [None]
  - EAR PAIN [None]
